FAERS Safety Report 17654851 (Version 1)
Quarter: 2020Q2

REPORT INFORMATION
  Report Type: Spontaneous
  Country: CA (occurrence: CA)
  Receive Date: 20200410
  Receipt Date: 20200410
  Transmission Date: 20200713
  Serious: Yes (Other)
  Sender: FDA-Public Use
  Company Number: CA-PFIZER INC-2020143972

PATIENT
  Age: 64 Year
  Sex: Female
  Weight: 75 kg

DRUGS (7)
  1. ASA [Concomitant]
     Active Substance: ASPIRIN
  2. METHOTREXATE. [Concomitant]
     Active Substance: METHOTREXATE
  3. FOLIC ACID. [Concomitant]
     Active Substance: FOLIC ACID
  4. LIPITOR [Concomitant]
     Active Substance: ATORVASTATIN CALCIUM
  5. XELJANZ [Suspect]
     Active Substance: TOFACITINIB CITRATE
     Indication: RHEUMATOID ARTHRITIS
     Dosage: 5 MG, 2X/DAY
     Route: 048
  6. METOPROLOL. [Concomitant]
     Active Substance: METOPROLOL
  7. PANTOPRAZOLE [Concomitant]
     Active Substance: PANTOPRAZOLE

REACTIONS (2)
  - Retinal vein occlusion [Unknown]
  - Visual impairment [Unknown]
